FAERS Safety Report 25826596 (Version 1)
Quarter: 2025Q3

REPORT INFORMATION
  Report Type: Spontaneous
  Country: TR (occurrence: TR)
  Receive Date: 20250920
  Receipt Date: 20250920
  Transmission Date: 20251021
  Serious: Yes (Other)
  Sender: ABBVIE
  Company Number: TR-ABBOTT-2025A-1402512

PATIENT
  Sex: Male

DRUGS (2)
  1. PANCRELIPASE [Suspect]
     Active Substance: PANCRELIPASE
     Indication: Abdominal discomfort
     Route: 048
     Dates: start: 20250820, end: 20250908
  2. Rabiza [Concomitant]
     Indication: Product used for unknown indication
     Route: 048

REACTIONS (1)
  - Haematuria [Recovered/Resolved]

NARRATIVE: CASE EVENT DATE: 20250908
